FAERS Safety Report 17397544 (Version 1)
Quarter: 2020Q1

REPORT INFORMATION
  Report Type: Spontaneous
  Country: US (occurrence: US)
  Receive Date: 20200210
  Receipt Date: 20200210
  Transmission Date: 20200409
  Serious: No
  Sender: FDA-Public Use
  Company Number: US-ASTRAZENECA-2020SE16203

PATIENT
  Sex: Female
  Weight: 6.3 kg

DRUGS (2)
  1. SYNAGIS [Suspect]
     Active Substance: PALIVIZUMAB
     Indication: ANTIVIRAL PROPHYLAXIS
     Route: 030
     Dates: start: 20191218
  2. PROTEIN [Concomitant]
     Active Substance: PROTEIN

REACTIONS (1)
  - Candida infection [Not Recovered/Not Resolved]
